FAERS Safety Report 16169484 (Version 2)
Quarter: 2019Q2

REPORT INFORMATION
  Report Type: Spontaneous
  Country: US (occurrence: US)
  Receive Date: 20190408
  Receipt Date: 20190409
  Transmission Date: 20190711
  Serious: Yes (Other)
  Sender: FDA-Public Use
  Company Number: US-JNJFOC-20190341591

PATIENT
  Sex: Female

DRUGS (1)
  1. TYLENOL WITH CODEINE [Suspect]
     Active Substance: ACETAMINOPHEN\CODEINE PHOSPHATE
     Indication: PROCEDURAL PAIN
     Route: 065

REACTIONS (5)
  - Vomiting [Unknown]
  - Loss of consciousness [Unknown]
  - Off label use [Unknown]
  - Product use in unapproved indication [Unknown]
  - Nausea [Unknown]
